FAERS Safety Report 6440627-9 (Version None)
Quarter: 2009Q4

REPORT INFORMATION
  Report Type: 
  Country: None (occurrence: None)
  Receive Date: 20091116
  Receipt Date: 20091102
  Transmission Date: 20100525
  Serious: Yes (Hospitalization)
  Sender: FDA-Public Use
  Company Number: PHHY2009FR48159

PATIENT
  Age: 61 Year
  Sex: Male

DRUGS (12)
  1. CERTICAN [Suspect]
     Dosage: 0.75 MG, BID
     Route: 048
     Dates: start: 20090624
  2. MABTHERA [Suspect]
     Dosage: WEEKLY PERFUSION (375MG/M2)
     Dates: start: 20090724
  3. MABTHERA [Suspect]
     Dosage: UNK
     Dates: start: 20090730
  4. MABTHERA [Suspect]
     Dosage: UNK
     Dates: start: 20090806
  5. MABTHERA [Suspect]
     Dosage: UNK
     Dates: start: 20090813
  6. BACTRIM [Concomitant]
     Dosage: 1 DF, QW3
  7. FLUCONAZOLE [Concomitant]
     Dosage: 200 MG, QD
  8. ZELITREX [Concomitant]
     Dosage: 1 DF, BID
  9. LEDERFOLIN [Concomitant]
     Dosage: 15 MG, QW3
  10. ESCITALOPRAM [Concomitant]
     Dosage: 5 MG, QD
  11. ALENDRONATE SODIUM [Concomitant]
     Dosage: 1 TABLET ON MONDAY
  12. CALCIUM [Concomitant]
     Dosage: 500 MG, QD

REACTIONS (4)
  - JUGULAR VEIN THROMBOSIS [None]
  - LOCALISED OEDEMA [None]
  - VOCAL CORD ATROPHY [None]
  - VOCAL CORD PARALYSIS [None]
